FAERS Safety Report 7128484-9 (Version None)
Quarter: 2010Q4

REPORT INFORMATION
  Report Type: 
  Country: None (occurrence: None)
  Receive Date: 20101130
  Receipt Date: 20101116
  Transmission Date: 20110411
  Serious: Yes (Hospitalization, Other)
  Sender: FDA-Public Use
  Company Number: DE-ACTELION-A-US2010-41961

PATIENT

DRUGS (1)
  1. ILOPROST INHALATION ROW [Suspect]
     Dosage: 5 UG, QID
     Route: 055
     Dates: start: 20080706

REACTIONS (1)
  - PULMONARY HAEMORRHAGE [None]
